FAERS Safety Report 5034385-2 (Version None)
Quarter: 2006Q2

REPORT INFORMATION
  Report Type: 
  Country: None (occurrence: None)
  Receive Date: 20060518
  Receipt Date: 20050929
  Transmission Date: 20061013
  Serious: Yes (Hospitalization)
  Sender: FDA-Public Use
  Company Number: 2005106528

PATIENT
  Age: 23 Year
  Sex: Female
  Weight: 69.8539 kg

DRUGS (5)
  1. DEPO-PROVERA [Suspect]
     Indication: CONTRACEPTION
     Dosage: SEE IMAGE
     Route: 030
     Dates: start: 20010101, end: 20010101
  2. DEPO-PROVERA [Suspect]
     Indication: DYSFUNCTIONAL UTERINE BLEEDING
     Dosage: SEE IMAGE
     Route: 030
     Dates: start: 20010101, end: 20010101
  3. DEPO-PROVERA [Suspect]
     Indication: CONTRACEPTION
     Dosage: SEE IMAGE
     Route: 030
     Dates: start: 20050722, end: 20050722
  4. DEPO-PROVERA [Suspect]
     Indication: DYSFUNCTIONAL UTERINE BLEEDING
     Dosage: SEE IMAGE
     Route: 030
     Dates: start: 20050722, end: 20050722
  5. DEPO-PROVERA [Suspect]
     Indication: ILL-DEFINED DISORDER

REACTIONS (4)
  - BILE OUTPUT INCREASED [None]
  - CONSTIPATION [None]
  - MENORRHAGIA [None]
  - METRORRHAGIA [None]
